FAERS Safety Report 6529652-7 (Version None)
Quarter: 2010Q1

REPORT INFORMATION
  Report Type: 
  Country: None (occurrence: None)
  Receive Date: 20100107
  Receipt Date: 20091221
  Transmission Date: 20100710
  Serious: Yes (Hospitalization)
  Sender: FDA-Public Use
  Company Number: AT-ASTRAZENECA-2009PK00659

PATIENT
  Sex: Female
  Weight: 75 kg

DRUGS (10)
  1. ARIMIDEX [Suspect]
     Indication: BREAST CANCER
     Route: 048
     Dates: start: 20081201
  2. DIABETEX [Concomitant]
     Route: 048
  3. GLIMEPIRID SANDOZ [Concomitant]
     Route: 048
  4. RAMIPRIL [Concomitant]
     Route: 048
  5. RISPERDAL RETARD [Concomitant]
     Route: 048
  6. FOSITENS [Concomitant]
     Route: 048
  7. LEVOTHYROXINE SODIUM [Concomitant]
     Route: 048
  8. DEPAKENE [Concomitant]
     Route: 048
  9. CAL-D-VITA [Concomitant]
  10. MIXTARD HUMAN 70/30 [Concomitant]
     Route: 058

REACTIONS (1)
  - BREAST NECROSIS [None]
